FAERS Safety Report 7250046-3 (Version None)
Quarter: 2011Q1

REPORT INFORMATION
  Report Type: 
  Country: None (occurrence: None)
  Receive Date: 20110128
  Receipt Date: 20101007
  Transmission Date: 20110831
  Serious: Yes (Hospitalization, Other)
  Sender: FDA-Public Use
  Company Number: US-BAYER-200943708NA

PATIENT
  Sex: Female
  Weight: 69.091 kg

DRUGS (11)
  1. VICODIN [Concomitant]
     Indication: PRODUCT USED FOR UNKNOWN INDICATION
     Route: 065
  2. ATIVAN [Concomitant]
     Indication: ANXIETY
     Dosage: UNK
     Dates: start: 20050406
  3. PROMETHEGAN [Concomitant]
     Dates: start: 20030222
  4. CIPRO [Concomitant]
     Dosage: UNK
     Dates: start: 20070519
  5. AMOXICILLIN AND CLAVULANATE POTASSIUM [Concomitant]
     Dosage: DOSE 875-125MG
     Dates: start: 20030222
  6. YASMIN [Suspect]
     Indication: PREMENSTRUAL SYNDROME
     Dates: start: 20030901, end: 20070601
  7. LEXAPRO [Concomitant]
     Indication: ANXIETY
     Dosage: UNK
     Dates: start: 20050118
  8. PHENERGAN [Concomitant]
  9. YASMIN [Suspect]
  10. ZOFRAN [Concomitant]
     Dosage: UNK
     Dates: start: 20070519
  11. CHANTIX [Concomitant]
     Dosage: UNK
     Dates: start: 20070718

REACTIONS (12)
  - CHOLECYSTITIS CHRONIC [None]
  - URINARY TRACT INFECTION [None]
  - VOMITING [None]
  - NEPHROPATHY [None]
  - GALLBLADDER CHOLESTEROLOSIS [None]
  - ABDOMINAL PAIN [None]
  - DIARRHOEA [None]
  - NEPHROLITHIASIS [None]
  - CHROMATURIA [None]
  - NAUSEA [None]
  - BACK PAIN [None]
  - URINE ODOUR ABNORMAL [None]
